FAERS Safety Report 4909195-4 (Version None)
Quarter: 2006Q1

REPORT INFORMATION
  Report Type: 
  Country: None (occurrence: None)
  Receive Date: 20060213
  Receipt Date: 20060201
  Transmission Date: 20060701
  Serious: Yes (Other)
  Sender: FDA-Public Use
  Company Number: PHBS2006JP01912

PATIENT

DRUGS (3)
  1. VOLTAREN [Suspect]
     Route: 048
  2. OPALMON [Concomitant]
     Route: 048
  3. SOLETON [Concomitant]
     Route: 048

REACTIONS (1)
  - RETINAL HAEMORRHAGE [None]
